FAERS Safety Report 18641287 (Version 2)
Quarter: 2021Q1

REPORT INFORMATION
  Report Type: Spontaneous
  Country: IT (occurrence: IT)
  Receive Date: 20201221
  Receipt Date: 20210311
  Transmission Date: 20210419
  Serious: Yes (Other)
  Sender: FDA-Public Use
  Company Number: IT-TEVA-2020-IT-1858619

PATIENT
  Age: 44 Year
  Sex: Female
  Weight: 58 kg

DRUGS (1)
  1. BOSENTAN MYLAN 125 MG COMPRESSE RIVESTITE CON FILM [Suspect]
     Active Substance: BOSENTAN ANHYDROUS
     Indication: SYSTEMIC SCLERODERMA
     Dosage: 125 MG
     Route: 048
     Dates: start: 20201010, end: 20201125

REACTIONS (2)
  - Therapy non-responder [Recovering/Resolving]
  - Skin ulcer [Recovering/Resolving]

NARRATIVE: CASE EVENT DATE: 20201125
